FAERS Safety Report 7023115-0 (Version None)
Quarter: 2010Q3

REPORT INFORMATION
  Report Type: 
  Country: None (occurrence: None)
  Receive Date: 20100930
  Receipt Date: 20100923
  Transmission Date: 20110219
  Serious: Yes (Other)
  Sender: FDA-Public Use
  Company Number: PHHY2010DE63550

PATIENT
  Sex: Male

DRUGS (10)
  1. EXELON [Suspect]
     Dosage: 9.5 MG/24 HOURS
     Route: 062
     Dates: start: 20100903, end: 20100906
  2. EXELON [Suspect]
     Dosage: 4.6 MG/24
     Route: 062
     Dates: start: 20100906
  3. SEROQUEL [Concomitant]
     Dosage: 75 MG, UNK
  4. SEROQUEL [Concomitant]
     Dosage: 87.5 MG, IN THE EVENING
  5. DARIFENACIN HYDROBROMIDE [Concomitant]
     Dosage: 7.5MG, UNK
  6. CARBIMAZOLE [Concomitant]
     Dosage: 20 MG, UNK
  7. PROTHIPENDYL [Concomitant]
     Dosage: 80 MG, UNK
  8. NEXIUM [Concomitant]
     Dosage: 20 MG, UNK
  9. MADOPAR [Concomitant]
     Dosage: UNK
  10. STALEVO 100 [Concomitant]
     Dosage: 150, UNK

REACTIONS (2)
  - AGGRESSION [None]
  - DISORIENTATION [None]
